FAERS Safety Report 25839642 (Version 1)
Quarter: 2025Q3

REPORT INFORMATION
  Report Type: Spontaneous
  Country: BR (occurrence: BR)
  Receive Date: 20250924
  Receipt Date: 20250924
  Transmission Date: 20251020
  Serious: Yes (Hospitalization)
  Sender: ALEXION PHARMACEUTICALS
  Company Number: BR-AstraZeneca-CH-00953069A

PATIENT
  Age: 83 Year
  Sex: Male

DRUGS (1)
  1. CALQUENCE [Suspect]
     Active Substance: ACALABRUTINIB
     Indication: Chronic lymphocytic leukaemia
     Dosage: 100 MILLIGRAM, BID
     Route: 065
     Dates: start: 202506, end: 2025

REACTIONS (2)
  - Haemorrhage [Unknown]
  - Renal haematoma [Not Recovered/Not Resolved]

NARRATIVE: CASE EVENT DATE: 20250714
